FAERS Safety Report 9188333 (Version 2)
Quarter: 2012Q4

REPORT INFORMATION
  Report Type: 
  Country: US (occurrence: US)
  Receive Date: 20121204
  Receipt Date: 20121211
  Transmission Date: 20130627
  Serious: Yes (Other)
  Sender: FDA-Public Use
  Company Number: US-RB-047317-12

PATIENT
  Age: 6 Year
  Sex: Male

DRUGS (3)
  1. MUCINEX [Suspect]
     Indication: PRODUCT USED FOR UNKNOWN INDICATION
     Dosage: 2 doses
     Route: 048
     Dates: start: 20121126
  2. MUCINEX [Suspect]
  3. LANTUS [Concomitant]
     Indication: TYPE 1 DIABETES MELLITUS
     Dosage: Every night at bedtime

REACTIONS (1)
  - Blood glucose increased [Recovered/Resolved]
